FAERS Safety Report 9053668 (Version 1)
Quarter: 2013Q1

REPORT INFORMATION
  Report Type: Spontaneous
  Country: US (occurrence: None)
  Receive Date: 20130201
  Receipt Date: 20130201
  Transmission Date: 20140127
  Serious: No
  Sender: FDA-Public Use
  Company Number: None

PATIENT
  Age: 68 Year
  Sex: Female
  Weight: 84.37 kg

DRUGS (1)
  1. RANITIDINE 150 MG PEVA MFG [Suspect]
     Indication: GASTROOESOPHAGEAL REFLUX DISEASE
     Dosage: 1 TABLET TWICE A DAY PO
     Route: 048
     Dates: start: 20130103, end: 20130125

REACTIONS (4)
  - Hallucination [None]
  - Nightmare [None]
  - Dyspnoea [None]
  - Depression [None]
